FAERS Safety Report 8343829-X (Version None)
Quarter: 2012Q2

REPORT INFORMATION
  Report Type: 
  Country: None (occurrence: None)
  Receive Date: 20120508
  Receipt Date: 20120427
  Transmission Date: 20120825
  Serious: Yes (Hospitalization, Other)
  Sender: FDA-Public Use
  Company Number: JP-GILEAD-2012-0052092

PATIENT
  Sex: Male

DRUGS (4)
  1. HEPSERA [Suspect]
     Indication: HEPATITIS B
     Dosage: 10MG PER DAY
     Route: 048
     Dates: start: 20050831, end: 20120303
  2. LAMIVUDINE (EPIVIR HBV) [Concomitant]
     Indication: HEPATITIS B
     Dosage: 100MG PER DAY
     Route: 048
     Dates: start: 20010712, end: 20120303
  3. CANDESARTAN CILEXETIL [Concomitant]
     Indication: HYPERTENSION
     Dosage: 4MG PER DAY
     Route: 048
     Dates: start: 20010712
  4. RABEPRAZOLE SODIUM [Concomitant]
     Indication: GASTROOESOPHAGEAL REFLUX DISEASE
     Dosage: 10MG PER DAY
     Route: 048
     Dates: start: 20010712

REACTIONS (17)
  - BONE DENSITY DECREASED [None]
  - INTERVERTEBRAL DISC PROTRUSION [None]
  - OSTEOMALACIA [None]
  - INTERVERTEBRAL DISC DEGENERATION [None]
  - RED BLOOD CELLS URINE POSITIVE [None]
  - PAIN [None]
  - HYPERPLASIA [None]
  - BLOOD URIC ACID DECREASED [None]
  - BLOOD CREATININE INCREASED [None]
  - VERTEBRAL FORAMINAL STENOSIS [None]
  - ALANINE AMINOTRANSFERASE INCREASED [None]
  - BLOOD PHOSPHORUS DECREASED [None]
  - GLUCOSE URINE PRESENT [None]
  - PROTEIN URINE PRESENT [None]
  - ASTHENIA [None]
  - SPINAL OSTEOARTHRITIS [None]
  - FANCONI SYNDROME [None]
